FAERS Safety Report 4809907-4 (Version None)
Quarter: 2005Q4

REPORT INFORMATION
  Report Type: 
  Country: None (occurrence: None)
  Receive Date: 20051024
  Receipt Date: 20051024
  Transmission Date: 20060501
  Serious: Yes (Hospitalization)
  Sender: FDA-Public Use
  Company Number: None

PATIENT
  Age: 70 Year
  Sex: Male

DRUGS (2)
  1. EPTIFIBATIDE [Suspect]
     Dosage: 2MCG/KG/MIN
     Dates: start: 20050808, end: 20050808
  2. HEPARIN [Suspect]
     Dosage: 600UNITS/HR

REACTIONS (5)
  - DUODENITIS [None]
  - GASTRITIS EROSIVE [None]
  - HAEMATOCHEZIA [None]
  - HAEMATOCRIT DECREASED [None]
  - POST PROCEDURAL COMPLICATION [None]
